FAERS Safety Report 20666860 (Version 5)
Quarter: 2022Q4

REPORT INFORMATION
  Report Type: Report from Study
  Country: BR (occurrence: BR)
  Receive Date: 20220403
  Receipt Date: 20221027
  Transmission Date: 20230112
  Serious: Yes (Other)
  Sender: FDA-Public Use
  Company Number: BR-JNJFOC-20220363484

PATIENT
  Age: 60 Year
  Sex: Female

DRUGS (7)
  1. SIMPONI [Suspect]
     Active Substance: GOLIMUMAB
     Indication: Rheumatoid arthritis
     Route: 058
  2. SIMPONI [Suspect]
     Active Substance: GOLIMUMAB
  3. METHOTREXATE [Concomitant]
     Active Substance: METHOTREXATE
     Indication: Rheumatoid arthritis
     Route: 048
     Dates: start: 2010
  4. FOLIC ACID [Concomitant]
     Active Substance: FOLIC ACID
     Indication: Rheumatoid arthritis
     Route: 048
     Dates: start: 2010
  5. ERYTHROPOIETIN [Concomitant]
     Active Substance: ERYTHROPOIETIN
     Indication: Chronic kidney disease
     Route: 058
     Dates: start: 2021
  6. PREDNISONE [Concomitant]
     Active Substance: PREDNISONE
  7. ATENOLOL [Concomitant]
     Active Substance: ATENOLOL

REACTIONS (3)
  - Device related infection [Recovering/Resolving]
  - Renal failure [Unknown]
  - Pain [Unknown]

NARRATIVE: CASE EVENT DATE: 20220224
